FAERS Safety Report 8999856 (Version 1)
Quarter: 2013Q1

REPORT INFORMATION
  Report Type: Spontaneous
  Country: FR (occurrence: FR)
  Receive Date: 20130102
  Receipt Date: 20130102
  Transmission Date: 20140127
  Serious: Yes (Hospitalization)
  Sender: FDA-Public Use
  Company Number: FR-SANOFI-AVENTIS-2012SA093030

PATIENT
  Age: 63 Year
  Sex: Male

DRUGS (2)
  1. RIFADINE [Suspect]
     Indication: PROPHYLAXIS
     Route: 065
     Dates: start: 20120715, end: 20121004
  2. PROGRAF [Suspect]
     Indication: PRODUCT USED FOR UNKNOWN INDICATION
     Route: 065
     Dates: start: 20120912

REACTIONS (3)
  - Transplant rejection [Recovering/Resolving]
  - Drug interaction [Unknown]
  - Underdose [Unknown]
